FAERS Safety Report 9664527 (Version 1)
Quarter: 2013Q4

REPORT INFORMATION
  Report Type: Spontaneous
  Country: US (occurrence: None)
  Receive Date: 20131030
  Receipt Date: 20131030
  Transmission Date: 20140711
  Serious: Yes (Hospitalization)
  Sender: FDA-Public Use
  Company Number: None

PATIENT
  Age: 71 Year
  Sex: Male
  Weight: 120 kg

DRUGS (2)
  1. LISINOPRIL [Suspect]
     Indication: HYPERTENSION
     Route: 048
     Dates: start: 19980202, end: 20130707
  2. CHLORTHALIDONE [Suspect]
     Indication: HYPERTENSION
     Route: 048
     Dates: start: 20110819

REACTIONS (4)
  - Pancreatitis [None]
  - Cholelithiasis [None]
  - Back pain [None]
  - Weight decreased [None]
